FAERS Safety Report 12296987 (Version 1)
Quarter: 2016Q2

REPORT INFORMATION
  Report Type: Spontaneous
  Country: US (occurrence: US)
  Receive Date: 20160422
  Receipt Date: 20160422
  Transmission Date: 20160815
  Serious: No
  Sender: FDA-Public Use
  Company Number: US-SA-2016SA004801

PATIENT
  Age: 69 Year
  Sex: Male

DRUGS (2)
  1. AFREZZA [Suspect]
     Active Substance: INSULIN HUMAN
     Indication: TYPE 1 DIABETES MELLITUS
     Dosage: MEAL TIME DOSE:12 UNIT(S)
     Route: 055
     Dates: start: 201512
  2. INSULIN [Concomitant]
     Active Substance: INSULIN NOS
     Dates: start: 1994

REACTIONS (4)
  - Cough [Not Recovered/Not Resolved]
  - Device issue [Unknown]
  - Blood glucose increased [Unknown]
  - Dry mouth [Unknown]

NARRATIVE: CASE EVENT DATE: 20160107
